FAERS Safety Report 13652230 (Version 2)
Quarter: 2017Q2

REPORT INFORMATION
  Report Type: Report from Study
  Country: DE (occurrence: DE)
  Receive Date: 20170614
  Receipt Date: 20170622
  Transmission Date: 20170830
  Serious: Yes (Death, Other)
  Sender: FDA-Public Use
  Company Number: DE-TEVA-777797GER

PATIENT
  Age: 45 Year
  Sex: Female

DRUGS (11)
  1. KETAMINE [Suspect]
     Active Substance: KETAMINE
     Route: 065
  2. PROTHIPENDYL [Suspect]
     Active Substance: PROTHIPENDYL
     Route: 065
  3. DIHYDROCODEINE [Suspect]
     Active Substance: DIHYDROCODEINE
     Route: 065
  4. DIPYRONE [Suspect]
     Active Substance: DIPYRONE
     Route: 065
  5. ATENOLOL. [Suspect]
     Active Substance: ATENOLOL
     Route: 065
  6. MIDAZOLAM [Suspect]
     Active Substance: MIDAZOLAM HYDROCHLORIDE
     Route: 065
  7. TRAZODONE [Suspect]
     Active Substance: TRAZODONE HYDROCHLORIDE
     Route: 065
  8. FENTANYL. [Suspect]
     Active Substance: FENTANYL
     Route: 065
  9. PROPOFOL. [Suspect]
     Active Substance: PROPOFOL
     Indication: DRUG USE DISORDER
     Route: 065
  10. DIPHENHYDRAMINE. [Suspect]
     Active Substance: DIPHENHYDRAMINE
     Route: 065
  11. PIPERAZINE [Suspect]
     Active Substance: PIPERAZINE
     Route: 065

REACTIONS (3)
  - Drug use disorder [Unknown]
  - Toxicity to various agents [Fatal]
  - Completed suicide [Fatal]
